FAERS Safety Report 5050419-3 (Version None)
Quarter: 2006Q3

REPORT INFORMATION
  Report Type: 
  Country: None (occurrence: None)
  Receive Date: 20060707
  Receipt Date: 20060629
  Transmission Date: 20061208
  Serious: Yes (Life-Threatening, Hospitalization)
  Sender: FDA-Public Use
  Company Number: S06-FRA-01380-01

PATIENT
  Age: 38 Year
  Sex: Female

DRUGS (2)
  1. SEROPLEX (ESCITALOPRAM) [Suspect]
     Dosage: 5 MG QD PO
     Route: 048
     Dates: start: 20050630, end: 20051214
  2. LAXATIVES [Suspect]
     Indication: CONSTIPATION

REACTIONS (26)
  - ACUTE RESPIRATORY DISTRESS SYNDROME [None]
  - BLOOD CALCIUM DECREASED [None]
  - BLOOD CHLORIDE DECREASED [None]
  - CARDIO-RESPIRATORY ARREST [None]
  - CARDIOGENIC SHOCK [None]
  - CARDIOMYOPATHY [None]
  - CEREBRAL DISORDER [None]
  - CONFUSIONAL STATE [None]
  - DIALYSIS [None]
  - EJECTION FRACTION DECREASED [None]
  - HYPOKALAEMIA [None]
  - LIVER DISORDER [None]
  - LUNG INFECTION [None]
  - METABOLIC ACIDOSIS [None]
  - MULTI-ORGAN FAILURE [None]
  - NOSOCOMIAL INFECTION [None]
  - PARAESTHESIA [None]
  - PROTEIN TOTAL DECREASED [None]
  - RENAL FAILURE [None]
  - RENAL TUBULAR NECROSIS [None]
  - STATUS EPILEPTICUS [None]
  - SYNCOPE [None]
  - TORSADE DE POINTES [None]
  - VENTRICULAR FIBRILLATION [None]
  - VENTRICULAR TACHYCARDIA [None]
  - VOMITING [None]
